FAERS Safety Report 5205829-8 (Version None)
Quarter: 2007Q1

REPORT INFORMATION
  Report Type: 
  Country: None (occurrence: None)
  Receive Date: 20070105
  Receipt Date: 20070105
  Transmission Date: 20070707
  Serious: Yes (Death)
  Sender: FDA-Public Use
  Company Number: None

PATIENT
  Age: 55 Year
  Sex: Female
  Weight: 65.7716 kg

DRUGS (2)
  1. LEFLUNOMIDE [Suspect]
     Indication: RHEUMATOID ARTHRITIS
     Dosage: 10 MG DAILY PO
     Route: 048
     Dates: start: 20061024, end: 20061103
  2. HUMIRA [Suspect]
     Indication: RHEUMATOID ARTHRITIS
     Dosage: 40MG WEEKLY IM
     Route: 030
     Dates: start: 20041007, end: 20061110

REACTIONS (8)
  - COAGULOPATHY [None]
  - HAEMORRHAGIC STROKE [None]
  - HEPATIC FAILURE [None]
  - HEPATOTOXICITY [None]
  - INFLUENZA LIKE ILLNESS [None]
  - LIVER DISORDER [None]
  - LUNG DISORDER [None]
  - NO THERAPEUTIC RESPONSE [None]
